FAERS Safety Report 12201656 (Version 1)
Quarter: 2016Q1

REPORT INFORMATION
  Report Type: Spontaneous
  Country: US (occurrence: US)
  Receive Date: 20160322
  Receipt Date: 20160322
  Transmission Date: 20160526
  Serious: No
  Sender: FDA-Public Use
  Company Number: US-SA-2015SA139856

PATIENT
  Age: 51 Year
  Sex: Female

DRUGS (1)
  1. NASACORT ALLERGY 24HR [Suspect]
     Active Substance: TRIAMCINOLONE ACETONIDE
     Indication: MULTIPLE ALLERGIES
     Dosage: DOSE:2 SQT/EA NOSTRIL?START FROM: 1 WEEK TO 9 DAYS AGO?END DATE: YESTERDAY
     Route: 045

REACTIONS (4)
  - Headache [Unknown]
  - Contusion [Unknown]
  - Oropharyngeal pain [Unknown]
  - Pruritus [Unknown]
